FAERS Safety Report 24332804 (Version 1)
Quarter: 2024Q3

REPORT INFORMATION
  Report Type: Spontaneous
  Country: FR (occurrence: FR)
  Receive Date: 20240918
  Receipt Date: 20240918
  Transmission Date: 20241017
  Serious: Yes (Hospitalization)
  Sender: PFIZER
  Company Number: None

PATIENT
  Age: 59 Year
  Sex: Male

DRUGS (7)
  1. MEROPENEM [Suspect]
     Active Substance: MEROPENEM
     Indication: Meningitis bacterial
     Dosage: FREQ:3 D;
     Dates: start: 20240730, end: 20240731
  2. SKENAN [Suspect]
     Active Substance: MORPHINE SULFATE
     Indication: Meningitis bacterial
     Dosage: FREQ:3 D;
     Dates: start: 20240730, end: 20240731
  3. SKENAN [Suspect]
     Active Substance: MORPHINE SULFATE
     Dosage: 10 MG, 1X/DAY
     Dates: start: 20240727, end: 20240730
  4. CEFOTAXIME [Suspect]
     Active Substance: CEFOTAXIME SODIUM
     Indication: Meningitis bacterial
     Dosage: FREQ:4 D;
     Dates: start: 20240721, end: 20240730
  5. METFORMIN HYDROCHLORIDE [Concomitant]
     Active Substance: METFORMIN HYDROCHLORIDE
     Dosage: 1000 MG, ALTERNATE DAY
  6. GLICLAZIDE [Concomitant]
     Active Substance: GLICLAZIDE
     Dosage: 60 MG, 1X/DAY
  7. LINEZOLID [Concomitant]
     Active Substance: LINEZOLID
     Dosage: 600 MG, ALTERNATE DAY

REACTIONS (1)
  - Encephalopathy [Recovered/Resolved]

NARRATIVE: CASE EVENT DATE: 20240731
